FAERS Safety Report 5131964-9 (Version None)
Quarter: 2006Q4

REPORT INFORMATION
  Report Type: 
  Country: None (occurrence: None)
  Receive Date: 20061017
  Receipt Date: 20061004
  Transmission Date: 20070319
  Serious: Yes (Hospitalization)
  Sender: FDA-Public Use
  Company Number: 163-C5013-06030521

PATIENT
  Age: 56 Year
  Sex: Female
  Weight: 63.5036 kg

DRUGS (21)
  1. REVLIMID [Suspect]
     Indication: MULTIPLE MYELOMA
     Dosage: 25 MG, 21 DAYS, ORAL
     Route: 048
     Dates: start: 20060127, end: 20060310
  2. DEXAMETHASONE TAB [Suspect]
     Indication: MULTIPLE MYELOMA
     Dosage: 40 MG, QD X4 DAYS, ORAL
     Route: 048
     Dates: start: 20060127, end: 20060310
  3. PERCOCET [Concomitant]
  4. LEVOTHYROXINE SODIUM [Concomitant]
  5. RABEPRAZOLE SODIUM [Concomitant]
  6. FOLATE (FOLATE SODIUM) [Concomitant]
  7. METOPROLOL TARTRATE [Concomitant]
  8. MUCINEX [Concomitant]
  9. BENADRYL [Concomitant]
  10. LOTRIMIN [Concomitant]
  11. MEGACE [Concomitant]
  12. NEXIUM [Concomitant]
  13. DIFLUCAN [Concomitant]
  14. SYNTHROID [Concomitant]
  15. PREDNISONE TAB [Concomitant]
  16. ACETAMINOPHEN [Concomitant]
  17. OXYCONTIN [Concomitant]
  18. DIGOXIN [Concomitant]
  19. COREG [Concomitant]
  20. LISINOPRIL [Concomitant]
  21. LASIX [Concomitant]

REACTIONS (33)
  - ANAEMIA [None]
  - ATELECTASIS [None]
  - ATRIAL FIBRILLATION [None]
  - BACTERIAL INFECTION [None]
  - BLOOD ALBUMIN DECREASED [None]
  - BLOOD CHLORIDE DECREASED [None]
  - BLOOD POTASSIUM DECREASED [None]
  - BLOOD PRESSURE DIASTOLIC DECREASED [None]
  - BLOOD PRESSURE DIASTOLIC INCREASED [None]
  - BLOOD SODIUM DECREASED [None]
  - CANDIDIASIS [None]
  - CATHETER RELATED INFECTION [None]
  - CENTRAL NERVOUS SYSTEM INFECTION [None]
  - DEHYDRATION [None]
  - DELIRIUM [None]
  - ESCHERICHIA INFECTION [None]
  - HALLUCINATIONS, MIXED [None]
  - HEART RATE INCREASED [None]
  - HYPOKALAEMIA [None]
  - KLEBSIELLA INFECTION [None]
  - LUNG CONSOLIDATION [None]
  - LYMPHADENOPATHY [None]
  - METABOLIC DISORDER [None]
  - ORAL INTAKE REDUCED [None]
  - PANCYTOPENIA [None]
  - PERICARDIAL EFFUSION [None]
  - PLASMACYTOMA [None]
  - PLEURAL EFFUSION [None]
  - PULMONARY CONGESTION [None]
  - PULMONARY OEDEMA [None]
  - RASH [None]
  - SEPSIS [None]
  - STAPHYLOCOCCAL INFECTION [None]
